FAERS Safety Report 19028186 (Version 1)
Quarter: 2021Q1

REPORT INFORMATION
  Report Type: Report from Study
  Country: US (occurrence: US)
  Receive Date: 20210318
  Receipt Date: 20210318
  Transmission Date: 20210420
  Serious: Yes (Hospitalization)
  Sender: FDA-Public Use
  Company Number: US-TAKEDA-US201607685

PATIENT
  Age: 7 Year
  Sex: Male

DRUGS (4)
  1. IDURSULFASE [Suspect]
     Active Substance: IDURSULFASE
     Dosage: 0.54 MG/KG, 1X/WEEK
     Route: 041
     Dates: start: 20130211, end: 20130820
  2. IDURSULFASE [Suspect]
     Active Substance: IDURSULFASE
     Indication: MUCOPOLYSACCHARIDOSIS II
     Dosage: 0.71 MG/KG, 1X/WEEK
     Route: 041
     Dates: start: 20150130
  3. IDURSULFASE [Suspect]
     Active Substance: IDURSULFASE
     Dosage: 0.61 MG/KG, 1X/WEEK
     Route: 041
     Dates: start: 20120228, end: 20130210
  4. IDURSULFASE [Suspect]
     Active Substance: IDURSULFASE
     Dosage: 0.72 MG/KG, 1X/WEEK
     Route: 041
     Dates: start: 20130821, end: 20150123

REACTIONS (2)
  - Knee deformity [Recovered/Resolved]
  - Tendinous contracture [Unknown]
